APPROVED DRUG PRODUCT: TOLAK
Active Ingredient: FLUOROURACIL
Strength: 4%
Dosage Form/Route: CREAM;TOPICAL
Application: N022259 | Product #001
Applicant: HILL DERMACEUTICALS INC
Approved: Sep 18, 2015 | RLD: Yes | RS: Yes | Type: RX